FAERS Safety Report 16101796 (Version 1)
Quarter: 2019Q1

REPORT INFORMATION
  Report Type: Spontaneous
  Country: US (occurrence: US)
  Receive Date: 20190321
  Receipt Date: 20190321
  Transmission Date: 20190418
  Serious: No
  Sender: FDA-Public Use
  Company Number: US-TEVA-2019-US-1017743

PATIENT
  Age: 18 Year
  Sex: Female

DRUGS (3)
  1. GUANFACINE ER [Suspect]
     Active Substance: GUANFACINE
     Indication: ATTENTION DEFICIT/HYPERACTIVITY DISORDER
  2. GUANFACINE ER [Suspect]
     Active Substance: GUANFACINE
     Indication: ANXIETY
     Dosage: EXTENDED RELEASE TABLETS
     Route: 065
  3. GUANFACINE ER [Suspect]
     Active Substance: GUANFACINE
     Indication: DEPRESSION

REACTIONS (5)
  - Obsessive-compulsive disorder [Unknown]
  - Insomnia [Unknown]
  - Product substitution issue [Unknown]
  - Abnormal behaviour [Unknown]
  - Change in sustained attention [Unknown]
